FAERS Safety Report 10026075 (Version 1)
Quarter: 2014Q1

REPORT INFORMATION
  Report Type: Spontaneous
  Country: US (occurrence: US)
  Receive Date: 20140320
  Receipt Date: 20140320
  Transmission Date: 20141002
  Serious: Yes (Hospitalization)
  Sender: FDA-Public Use
  Company Number: US-RB-064657-14

PATIENT
  Age: 61 Year
  Sex: Male

DRUGS (2)
  1. BUPRENORPHINE GENERIC [Suspect]
     Indication: DRUG DEPENDENCE
     Route: 060
     Dates: start: 2010
  2. BUPRENORPHINE GENERIC [Suspect]
     Dosage: TAPERED DOSES FROM 16 TO 8 MG
     Route: 060

REACTIONS (10)
  - Nephrolithiasis [Recovered/Resolved]
  - Therapeutic response unexpected [Not Recovered/Not Resolved]
  - Condition aggravated [Recovered/Resolved]
  - Groin pain [Not Recovered/Not Resolved]
  - Pain in extremity [Not Recovered/Not Resolved]
  - Chest pain [Not Recovered/Not Resolved]
  - Inguinal hernia [Not Recovered/Not Resolved]
  - Abdominal pain upper [Not Recovered/Not Resolved]
  - Testicular swelling [Not Recovered/Not Resolved]
  - Unevaluable event [Not Recovered/Not Resolved]
